FAERS Safety Report 5329927-3 (Version None)
Quarter: 2007Q2

REPORT INFORMATION
  Report Type: 
  Country: None (occurrence: None)
  Receive Date: 20070521
  Receipt Date: 20070508
  Transmission Date: 20071010
  Serious: Yes (Death, Other)
  Sender: FDA-Public Use
  Company Number: FR-JNJFOC-20070203172

PATIENT
  Sex: Male

DRUGS (6)
  1. REMICADE [Suspect]
     Route: 042
  2. REMICADE [Suspect]
     Dosage: SECOND DOSE
     Route: 042
  3. REMICADE [Suspect]
     Indication: CROHN'S DISEASE
     Route: 042
  4. 6-MP [Suspect]
     Indication: CROHN'S DISEASE
  5. MESALAMINE [Concomitant]
  6. PREDNISONE TAB [Concomitant]

REACTIONS (2)
  - HEPATOSPLENIC T-CELL LYMPHOMA [None]
  - MULTI-ORGAN FAILURE [None]
